FAERS Safety Report 9117990 (Version 23)
Quarter: 2019Q2

REPORT INFORMATION
  Report Type: Report from Study
  Country: CA (occurrence: CA)
  Receive Date: 20130226
  Receipt Date: 20190520
  Transmission Date: 20190711
  Serious: Yes (Other)
  Sender: FDA-Public Use
  Company Number: PHHY2013CA003765

PATIENT
  Age: 71 Year
  Sex: Male

DRUGS (6)
  1. SANDOSTATIN LAR DEPOT [Suspect]
     Active Substance: OCTREOTIDE ACETATE
     Dosage: 30 MG, QMO
     Route: 030
     Dates: start: 20130430
  2. SANDOSTATIN [Suspect]
     Active Substance: OCTREOTIDE ACETATE
     Indication: CARCINOID SYNDROME
     Dosage: 150 UG, QID
     Route: 058
     Dates: start: 201210, end: 201210
  3. VITAMIN B12 [Concomitant]
     Active Substance: CYANOCOBALAMIN
     Indication: PRODUCT USED FOR UNKNOWN INDICATION
     Route: 065
  4. MAGNESIUM [Concomitant]
     Active Substance: MAGNESIUM
     Indication: PRODUCT USED FOR UNKNOWN INDICATION
     Route: 065
  5. SANDOSTATIN LAR DEPOT [Suspect]
     Active Substance: OCTREOTIDE ACETATE
     Dosage: 30 MG, QMO
     Route: 030
     Dates: start: 20170109
  6. SANDOSTATIN LAR DEPOT [Suspect]
     Active Substance: OCTREOTIDE ACETATE
     Indication: CARCINOID SYNDROME
     Dosage: 30 MG, QMO
     Route: 030
     Dates: start: 20121018

REACTIONS (33)
  - Mass [Unknown]
  - Musculoskeletal pain [Unknown]
  - Peripheral swelling [Recovered/Resolved]
  - Oedema peripheral [Unknown]
  - Erythema [Recovered/Resolved]
  - Peripheral coldness [Unknown]
  - Burning sensation [Recovered/Resolved]
  - Rash [Not Recovered/Not Resolved]
  - Abdominal hernia [Unknown]
  - Pain [Unknown]
  - Fatigue [Unknown]
  - Hepatic lesion [Unknown]
  - Back pain [Unknown]
  - Insomnia [Unknown]
  - Gait disturbance [Unknown]
  - Cough [Unknown]
  - Diarrhoea [Unknown]
  - Pain in extremity [Recovered/Resolved]
  - Arthropathy [Unknown]
  - Blood disorder [Unknown]
  - Incisional hernia [Unknown]
  - Muscle spasms [Unknown]
  - Blood pressure systolic increased [Unknown]
  - Pruritus [Unknown]
  - Flushing [Unknown]
  - Eye inflammation [Unknown]
  - Blister [Unknown]
  - Peripheral swelling [Unknown]
  - Benign prostatic hyperplasia [Unknown]
  - Cardiovascular disorder [Unknown]
  - Injection site mass [Unknown]
  - Urinary tract infection [Recovered/Resolved]
  - Pain in extremity [Recovered/Resolved]

NARRATIVE: CASE EVENT DATE: 20161208
